FAERS Safety Report 23184290 (Version 2)
Quarter: 2024Q1

REPORT INFORMATION
  Report Type: Spontaneous
  Country: US (occurrence: US)
  Receive Date: 20231115
  Receipt Date: 20240212
  Transmission Date: 20240410
  Serious: No
  Sender: FDA-Public Use
  Company Number: US-GLENMARK PHARMACEUTICALS-2023GMK086076

PATIENT

DRUGS (1)
  1. METRONIDAZOLE [Suspect]
     Active Substance: METRONIDAZOLE
     Indication: Product used for unknown indication
     Dosage: 1 DOSAGE FORM, TWICE A WEEK AT BEDTIME
     Route: 067

REACTIONS (3)
  - Inappropriate schedule of product administration [Unknown]
  - Product prescribing issue [Unknown]
  - Product label issue [Unknown]
